FAERS Safety Report 13649042 (Version 2)
Quarter: 2017Q3

REPORT INFORMATION
  Report Type: Spontaneous
  Country: US (occurrence: US)
  Receive Date: 20170613
  Receipt Date: 20170712
  Transmission Date: 20171127
  Serious: No
  Sender: FDA-Public Use
  Company Number: US-009507513-1706USA002332

PATIENT

DRUGS (2)
  1. PROSCAR [Suspect]
     Active Substance: FINASTERIDE
     Indication: HAIR GROWTH ABNORMAL
     Route: 061
  2. PROSCAR [Suspect]
     Active Substance: FINASTERIDE
     Indication: NEOPLASM PROPHYLAXIS

REACTIONS (2)
  - Product use issue [Unknown]
  - Product use in unapproved indication [Unknown]
